FAERS Safety Report 4807273-1 (Version None)
Quarter: 2005Q4

REPORT INFORMATION
  Report Type: 
  Country: None (occurrence: None)
  Receive Date: 20051024
  Receipt Date: 20051017
  Transmission Date: 20060501
  Serious: Yes (Other)
  Sender: FDA-Public Use
  Company Number: CA-MERCK-0510CAN00186

PATIENT
  Sex: Male

DRUGS (3)
  1. ZETIA [Suspect]
     Route: 048
  2. ROSUVASTATIN CALCIUM [Concomitant]
     Route: 065
  3. FENOFIBRATE [Concomitant]
     Route: 065

REACTIONS (2)
  - CEREBROVASCULAR ACCIDENT [None]
  - HIGH DENSITY LIPOPROTEIN DECREASED [None]
